FAERS Safety Report 5152583-4 (Version None)
Quarter: 2006Q4

REPORT INFORMATION
  Report Type: 
  Country: None (occurrence: None)
  Receive Date: 20061109
  Receipt Date: 20061027
  Transmission Date: 20070319
  Serious: Yes (Disabling)
  Sender: FDA-Public Use
  Company Number: 2006120981

PATIENT
  Age: 64 Year
  Sex: Female
  Weight: 62 kg

DRUGS (3)
  1. LYRICA [Suspect]
     Indication: BACK PAIN
     Dosage: 450 MG (150 MG, 3 IN 1 D), ORAL
     Route: 048
     Dates: start: 20060501, end: 20060922
  2. LYRICA [Suspect]
     Indication: NEURALGIA
     Dosage: 450 MG (150 MG, 3 IN 1 D), ORAL
     Route: 048
     Dates: start: 20060501, end: 20060922
  3. ALL OTHER THERAPEUTIC PRODUCTS (ALL OTHER THERAPEUTIC PRODUCTS) [Concomitant]

REACTIONS (11)
  - ARTHRALGIA [None]
  - ARTHROPATHY [None]
  - BURSITIS [None]
  - HAND DEFORMITY [None]
  - HYPERSENSITIVITY [None]
  - INFLAMMATION [None]
  - JOINT STIFFNESS [None]
  - LUPUS-LIKE SYNDROME [None]
  - MUSCLE SPASTICITY [None]
  - RADICULITIS [None]
  - TENOSYNOVITIS [None]
